FAERS Safety Report 6726364-1 (Version None)
Quarter: 2010Q2

REPORT INFORMATION
  Report Type: 
  Country: None (occurrence: None)
  Receive Date: 20100514
  Receipt Date: 20100506
  Transmission Date: 20101027
  Serious: Yes (Other)
  Sender: FDA-Public Use
  Company Number: A0858732A

PATIENT
  Sex: Female

DRUGS (11)
  1. TYKERB [Suspect]
     Dosage: 1250MG PER DAY
     Route: 048
     Dates: start: 20100121
  2. XELODA [Suspect]
     Indication: DRUG USE FOR UNKNOWN INDICATION
     Route: 065
  3. PARIET [Concomitant]
  4. ACTONEL [Concomitant]
  5. CALCIUM [Concomitant]
  6. VITAMIN D [Concomitant]
  7. VITAMIN B6 [Concomitant]
  8. LORAZEPAM [Concomitant]
  9. EYE DROPS [Concomitant]
     Indication: GLAUCOMA
  10. URSODIOL [Concomitant]
  11. CHEMOTHERAPY [Concomitant]

REACTIONS (7)
  - ABDOMINAL DISTENSION [None]
  - CHOLELITHIASIS [None]
  - HEPATIC ENZYME INCREASED [None]
  - JAUNDICE [None]
  - OEDEMA PERIPHERAL [None]
  - PLATELET COUNT [None]
  - WEIGHT INCREASED [None]
